FAERS Safety Report 16717354 (Version 2)
Quarter: 2019Q3

REPORT INFORMATION
  Report Type: Report from Study
  Country: GB (occurrence: GB)
  Receive Date: 20190819
  Receipt Date: 20190826
  Transmission Date: 20191005
  Serious: Yes (Disabling)
  Sender: FDA-Public Use
  Company Number: GB-PFIZER INC-2019339757

PATIENT
  Weight: 32.1 kg

DRUGS (11)
  1. SALBUTAMOL [Concomitant]
     Active Substance: ALBUTEROL
     Indication: ASTHMA
     Dosage: (2-10 PUFFS, Q.L/PRN)
  2. MEROPENEM. [Concomitant]
     Active Substance: MEROPENEM
     Indication: ANTIBIOTIC THERAPY
     Dosage: 670 MG, 3X/DAY
     Dates: start: 20190721, end: 20190726
  3. OXYCODONE [Concomitant]
     Active Substance: OXYCODONE
     Indication: ANALGESIC THERAPY
     Dosage: 1.25 MG, 4X/DAY (6 HOURLY)
     Dates: start: 20190718, end: 20190723
  4. RANITIDINE. [Concomitant]
     Active Substance: RANITIDINE
     Indication: DYSPEPSIA
     Dosage: UNK
     Dates: start: 20190731
  5. MAROGEL [Concomitant]
     Indication: CONSTIPATION
     Dosage: 1 DF, DAILY (1 SACHET)
     Dates: start: 20190721
  6. AMBISOME [AMPHOTERICIN B, LIPOSOME] [Concomitant]
     Indication: ANTIFUNGAL TREATMENT
     Dosage: 100 MG, DAILY
     Dates: start: 20190720, end: 20190724
  7. COTRIMOXAZOLE [Concomitant]
     Active Substance: SULFAMETHOXAZOLE\TRIMETHOPRIM
     Indication: LOCALISED INFECTION
     Dosage: UNK UNK, 2X/DAY
     Dates: start: 20190726
  8. GEMTUZUMAB OZOGAMICIN [Suspect]
     Active Substance: GEMTUZUMAB OZOGAMICIN
     Indication: ACUTE MYELOID LEUKAEMIA
     Dosage: 3 MG, UNK
     Route: 042
     Dates: start: 20190711, end: 20190711
  9. METOCLOPRAMIDE. [Concomitant]
     Active Substance: METOCLOPRAMIDE
     Indication: ANTIEMETIC SUPPORTIVE CARE
     Dosage: 3.4 MG, 4X/DAY
     Dates: start: 20190802
  10. MITOXANTRONE HCL [Suspect]
     Active Substance: MITOXANTRONE HYDROCHLORIDE
     Indication: ACUTE MYELOID LEUKAEMIA
     Dosage: 14 MG/M2, 1X/DAY
     Route: 042
     Dates: start: 20190709, end: 20190712
  11. AMBISOME [AMPHOTERICIN B, LIPOSOME] [Concomitant]
     Dosage: 100 MG, DAILY
     Dates: start: 20190726

REACTIONS (4)
  - Platelet count decreased [Unknown]
  - Pleural effusion [Unknown]
  - Haemothorax [Unknown]
  - Post procedural haemorrhage [Unknown]

NARRATIVE: CASE EVENT DATE: 20190802
